FAERS Safety Report 7004064-0 (Version None)
Quarter: 2010Q3

REPORT INFORMATION
  Report Type: 
  Country: None (occurrence: None)
  Receive Date: 20100917
  Receipt Date: 20100907
  Transmission Date: 20110219
  Serious: Yes (Disabling, Other)
  Sender: FDA-Public Use
  Company Number: 2010P1001337

PATIENT
  Sex: Female

DRUGS (1)
  1. METOCLOPRAMIDE [Suspect]
     Dosage: PO
     Route: 048
     Dates: start: 20030701, end: 20081001

REACTIONS (9)
  - ANXIETY [None]
  - ASTHENIA [None]
  - BLEPHAROSPASM [None]
  - DYSKINESIA [None]
  - DYSTONIA [None]
  - EMOTIONAL DISORDER [None]
  - MENTAL DISORDER [None]
  - RESPIRATORY DYSKINESIA [None]
  - TREMOR [None]
